FAERS Safety Report 14746792 (Version 1)
Quarter: 2018Q2

REPORT INFORMATION
  Report Type: Report from Study
  Country: GB (occurrence: DE)
  Receive Date: 20180411
  Receipt Date: 20180411
  Transmission Date: 20180711
  Serious: Yes (Life-Threatening)
  Sender: FDA-Public Use
  Company Number: GB-BAYER-RCH-104396

PATIENT
  Age: 83 Year
  Sex: Male
  Weight: 70 kg

DRUGS (23)
  1. CO-DIOVAN [Suspect]
     Active Substance: HYDROCHLOROTHIAZIDE\VALSARTAN
     Indication: HYPERTENSION
     Route: 048
  2. FRAGMIN P [Suspect]
     Active Substance: DALTEPARIN SODIUM
     Indication: THROMBOSIS PROPHYLAXIS
     Dosage: 1 DF, QD
     Route: 058
     Dates: start: 19980225
  3. AMLODIPINE [Concomitant]
     Active Substance: AMLODIPINE BESYLATE
     Indication: HYPERTENSION
     Route: 048
  4. ADALAT [Suspect]
     Active Substance: NIFEDIPINE
     Indication: HYPERTENSION
     Route: 048
     Dates: start: 19980226, end: 19980226
  5. EUGLUCON N [Suspect]
     Active Substance: GLYBURIDE
     Indication: DIABETES MELLITUS
     Route: 048
  6. TRAMAL LONG [Suspect]
     Active Substance: TRAMADOL
     Indication: PAIN
     Route: 048
     Dates: start: 19980209, end: 19980223
  7. FENTANYL. [Suspect]
     Active Substance: FENTANYL
     Indication: ANAESTHESIA
     Dosage: 1 DF, QD
     Route: 042
     Dates: start: 19980226, end: 19980226
  8. SPASURET [Concomitant]
     Indication: PROSTATIC OPERATION
     Route: 048
     Dates: end: 19980223
  9. VITAMIN C [ASCORBIC ACID] [Concomitant]
     Indication: VITAMIN SUPPLEMENTATION
     Route: 048
     Dates: end: 19980223
  10. NOVODIGAL [DIGOXIN] [Concomitant]
     Indication: HYPERTENSION
     Route: 048
  11. HYPERICUM PERFORATUM EXTRACT [Concomitant]
     Active Substance: HYPERICUM PERFORATUM EXTRACT
     Indication: AGITATION
     Route: 048
     Dates: end: 19980223
  12. AGIOLAX [MATRICARIA RECUTITA,PLANTAGO AFRA SEED,SENNA ALEXANDRINA [Concomitant]
     Indication: CONSTIPATION
     Route: 048
     Dates: end: 19980223
  13. NOCTAMID [Suspect]
     Active Substance: LORMETAZEPAM
     Indication: SLEEP DISORDER
     Route: 048
     Dates: end: 19980223
  14. TEBONIN [Concomitant]
     Active Substance: GINKGO
     Indication: CARDIOVASCULAR DISORDER
     Route: 048
     Dates: start: 19980224
  15. NOVALGIN (METAMIZOLE SODIUM) [Suspect]
     Active Substance: METAMIZOLE SODIUM
     Indication: PAIN
     Route: 048
     Dates: start: 19980226, end: 19980226
  16. CIPROBAY [CIPROFLOXACIN HYDROCHLORIDE] [Suspect]
     Active Substance: CIPROFLOXACIN
     Indication: INFECTION PROPHYLAXIS
     Route: 042
     Dates: start: 19980226, end: 19980226
  17. ANTRA [Concomitant]
     Active Substance: OMEPRAZOLE
     Indication: PROPHYLAXIS
     Route: 048
     Dates: end: 19980223
  18. GINKOBIL [Concomitant]
     Indication: CARDIOVASCULAR DISORDER
     Route: 048
     Dates: end: 19980223
  19. BACTRIM-FORTE [Suspect]
     Active Substance: SULFAMETHOXAZOLE\TRIMETHOPRIM
     Indication: INFECTION PROPHYLAXIS
     Route: 048
     Dates: start: 19980226, end: 19980226
  20. MULTIVITAMIN [Concomitant]
     Active Substance: VITAMINS
     Indication: VITAMIN SUPPLEMENTATION
     Route: 048
     Dates: end: 19980223
  21. NORMOFUNDIN [Concomitant]
     Active Substance: UNSPECIFIED INGREDIENT
     Indication: ELECTROLYTE IMBALANCE
     Route: 042
     Dates: start: 19980226, end: 19980226
  22. ASPIRIN 100 MG [Suspect]
     Active Substance: ASPIRIN
     Indication: THROMBOSIS PROPHYLAXIS
     Route: 048
     Dates: end: 19980223
  23. DEXAMETHASONE [DEXAMETHASONE] [Concomitant]
     Indication: CATARACT OPERATION
     Route: 047

REACTIONS (7)
  - Pyrexia [Recovering/Resolving]
  - Pruritus [Recovering/Resolving]
  - Toxic epidermal necrolysis [Recovering/Resolving]
  - Skin lesion [Recovering/Resolving]
  - Ocular hyperaemia [Recovering/Resolving]
  - Lip erosion [Recovering/Resolving]
  - Genital erythema [None]

NARRATIVE: CASE EVENT DATE: 19980227
